FAERS Safety Report 15505892 (Version 1)
Quarter: 2018Q4

REPORT INFORMATION
  Report Type: Spontaneous
  Country: US (occurrence: US)
  Receive Date: 20181016
  Receipt Date: 20181016
  Transmission Date: 20190205
  Serious: No
  Sender: FDA-Public Use
  Company Number: US-PFIZER INC-2018413779

PATIENT
  Age: 69 Year
  Sex: Female
  Weight: 48.93 kg

DRUGS (2)
  1. IBRANCE [Suspect]
     Active Substance: PALBOCICLIB
     Dosage: 100 MG, CYCLIC  (ONE TIME EVERY DAY FOR 21 DAYS AND THEN SHE IS OFF OF IT FOR 7 DAYS)
  2. IBRANCE [Suspect]
     Active Substance: PALBOCICLIB
     Indication: BREAST CANCER
     Dosage: 125 MG, UNK
     Dates: start: 20180313

REACTIONS (4)
  - Incorrect dose administered [Unknown]
  - Neoplasm progression [Unknown]
  - Product dispensing error [Unknown]
  - Laboratory test abnormal [Unknown]
